FAERS Safety Report 23534560 (Version 3)
Quarter: 2024Q1

REPORT INFORMATION
  Report Type: Spontaneous
  Country: IT (occurrence: IT)
  Receive Date: 20240217
  Receipt Date: 20240304
  Transmission Date: 20240410
  Serious: Yes (Life-Threatening)
  Sender: FDA-Public Use
  Company Number: IT-009507513-2308ITA009341

PATIENT
  Age: 59 Year
  Sex: Female

DRUGS (6)
  1. CYCLOPHOSPHAMIDE [Suspect]
     Active Substance: CYCLOPHOSPHAMIDE
     Indication: Triple negative breast cancer
     Dosage: UNK UNK, Q3W, 600 MG/SQ.M
     Route: 065
  2. CARBOPLATIN [Suspect]
     Active Substance: CARBOPLATIN
     Indication: Triple negative breast cancer
     Dosage: UNK, 1.5 AREA UNDER CURVE (AUC)
     Route: 065
     Dates: start: 20221130, end: 20230223
  3. CARBOPLATIN [Suspect]
     Active Substance: CARBOPLATIN
     Dosage: AREA UNDER THE CURVE (AUC) 1.5, QW
     Route: 065
     Dates: start: 20221130, end: 20230223
  4. EPIRUBICIN [Suspect]
     Active Substance: EPIRUBICIN
     Indication: Triple negative breast cancer
     Dosage: UNK UNK, Q3W, 90 MG/SQ.M
     Route: 065
     Dates: start: 20230302
  5. PACLITAXEL [Suspect]
     Active Substance: PACLITAXEL
     Indication: Triple negative breast cancer
     Dosage: UNK, 80MG/SQ.M
     Route: 065
     Dates: start: 20221130, end: 20230223
  6. PEMBROLIZUMAB [Suspect]
     Active Substance: PEMBROLIZUMAB
     Indication: Triple negative breast cancer
     Dosage: 200 MG, Q3W, 200 MILLIGRAM, Q3W
     Route: 065
     Dates: start: 20221222, end: 20230504

REACTIONS (9)
  - Toxicity to various agents [Unknown]
  - Immune-mediated cystitis [Not Recovered/Not Resolved]
  - Immune-mediated enterocolitis [Recovered/Resolved]
  - Cystitis [Not Recovered/Not Resolved]
  - Colitis [Recovered/Resolved]
  - Off label use [Unknown]
  - Off label use [Unknown]
  - Product use issue [Unknown]
  - Product use issue [Unknown]

NARRATIVE: CASE EVENT DATE: 20221130
